FAERS Safety Report 6617670-X (Version None)
Quarter: 2010Q1

REPORT INFORMATION
  Report Type: 
  Country: None (occurrence: None)
  Receive Date: 20100308
  Receipt Date: 20100224
  Transmission Date: 20100710
  Serious: Yes (Hospitalization, Other)
  Sender: FDA-Public Use
  Company Number: 2008BI028416

PATIENT
  Age: 50 Year
  Sex: Female
  Weight: 92 kg

DRUGS (2)
  1. AVONEX [Suspect]
     Indication: MULTIPLE SCLEROSIS
     Route: 030
     Dates: start: 20040102
  2. AVONEX [Suspect]
     Route: 030
     Dates: start: 20070301

REACTIONS (9)
  - ARTHROPATHY [None]
  - DYSURIA [None]
  - INJECTION SITE PAIN [None]
  - JOINT LOCK [None]
  - MUSCLE SPASMS [None]
  - NEURALGIA [None]
  - POST PROCEDURAL COMPLICATION [None]
  - SCAR [None]
  - THROMBOSIS [None]
